FAERS Safety Report 5152411-7 (Version None)
Quarter: 2006Q4

REPORT INFORMATION
  Report Type: 
  Country: None (occurrence: None)
  Receive Date: 20061116
  Receipt Date: 20060508
  Transmission Date: 20070319
  Serious: Yes (Hospitalization)
  Sender: FDA-Public Use
  Company Number: US-ELI_LILLY_AND_COMPANY-US200607003196

PATIENT
  Age: 29 Year
  Sex: Female
  Weight: 122.45 kg

DRUGS (3)
  1. ZYPREXA [Suspect]
     Dates: start: 20020101, end: 20040101
  2. SERTRALINE [Concomitant]
     Dates: start: 20030101, end: 20040101
  3. ESTROGENS CONJUGATED W/PROGESTERONE [Concomitant]
     Dates: start: 20030101

REACTIONS (3)
  - CHOLECYSTECTOMY [None]
  - HYPOGLYCAEMIA [None]
  - WEIGHT INCREASED [None]
